FAERS Safety Report 4350790-1 (Version None)
Quarter: 2004Q2

REPORT INFORMATION
  Report Type: 
  Country: None (occurrence: None)
  Receive Date: 20040430
  Receipt Date: 20040420
  Transmission Date: 20050107
  Serious: Yes (Hospitalization)
  Sender: FDA-Public Use
  Company Number: JP-ROCHE-365023

PATIENT
  Age: 71 Year
  Sex: Female
  Weight: 57.5 kg

DRUGS (4)
  1. CAPECITABINE [Suspect]
     Dosage: ACTUAL DOSE GIVEN = 1800 MG TWICE PER DAY, TWO WEEKS TREATMENT, ONE WEEK REST.
     Route: 048
     Dates: start: 20040329, end: 20040419
  2. TRIAZOLAM [Concomitant]
     Dosage: TAKEN PRN
     Dates: start: 20021015
  3. LOXOPROFEN SODIUM [Concomitant]
     Dosage: TAKEN PRN
     Dates: start: 20040326
  4. FAMOTIDINE [Concomitant]
     Dosage: TAKEN PRN
     Dates: start: 20040326

REACTIONS (10)
  - COMPUTERISED TOMOGRAM ABNORMAL [None]
  - DIFFICULTY IN WALKING [None]
  - MASS [None]
  - METASTASES TO CENTRAL NERVOUS SYSTEM [None]
  - NUCLEAR MAGNETIC RESONANCE IMAGING ABNORMAL [None]
  - NUCLEAR MAGNETIC RESONANCE IMAGING THORACIC ABNORMAL [None]
  - PERIPHERAL MOTOR NEUROPATHY [None]
  - SPINAL COMPRESSION FRACTURE [None]
  - SPINAL CORD COMPRESSION [None]
  - SPINAL DISORDER [None]
